FAERS Safety Report 16526003 (Version 1)
Quarter: 2019Q3

REPORT INFORMATION
  Report Type: Other
  Country: DE (occurrence: DE)
  Receive Date: 20190703
  Receipt Date: 20190703
  Transmission Date: 20191004
  Serious: No
  Sender: FDA-Public Use
  Company Number: DE-LUPIN PHARMACEUTICALS INC.-2018-04462

PATIENT
  Age: 51 Year
  Weight: 96 kg

DRUGS (2)
  1. SIMVASTATIN. [Suspect]
     Active Substance: SIMVASTATIN
     Indication: LOW DENSITY LIPOPROTEIN INCREASED
     Dosage: 20 MG, QD
     Route: 048
     Dates: start: 200505, end: 201306
  2. FLUVASTATIN [Suspect]
     Active Substance: FLUVASTATIN SODIUM
     Indication: LOW DENSITY LIPOPROTEIN INCREASED
     Dosage: DAILY DOSE 80 - 40 MG
     Route: 048

REACTIONS (2)
  - Myalgia [Recovered/Resolved]
  - Myalgia [Recovered/Resolved]

NARRATIVE: CASE EVENT DATE: 201306
